FAERS Safety Report 6184146-6 (Version None)
Quarter: 2009Q2

REPORT INFORMATION
  Report Type: 
  Country: None (occurrence: None)
  Receive Date: 20090506
  Receipt Date: 20090506
  Transmission Date: 20091009
  Serious: Yes (Hospitalization)
  Sender: FDA-Public Use
  Company Number: None

PATIENT
  Age: 23 Year
  Sex: Male

DRUGS (4)
  1. PREGABALIN 150MG [Suspect]
     Indication: PAIN
     Dosage: 150MG TWICE A DAY PO
     Route: 048
     Dates: start: 20070822, end: 20090124
  2. IBUPROFEN [Concomitant]
  3. DILTIAZEM [Concomitant]
  4. DULOXETINE [Concomitant]

REACTIONS (2)
  - COMPARTMENT SYNDROME [None]
  - RHABDOMYOLYSIS [None]
